FAERS Safety Report 5047163-5 (Version None)
Quarter: 2006Q3

REPORT INFORMATION
  Report Type: 
  Country: None (occurrence: None)
  Receive Date: 20060703
  Receipt Date: 20060609
  Transmission Date: 20061208
  Serious: Yes (Hospitalization, Other)
  Sender: FDA-Public Use
  Company Number: 2006080793

PATIENT
  Age: 69 Year
  Sex: Female

DRUGS (4)
  1. ZYRTEC [Suspect]
     Indication: DERMATITIS
     Dosage: 10 MG, ORAL
     Route: 048
     Dates: start: 20060508
  2. BUDESONIDE [Concomitant]
  3. MONTELUKAST SODIUM (MONTELUKAST SODIUM) [Concomitant]
  4. DIFLUPREDNATE (DIFLUPREDNATE) [Concomitant]

REACTIONS (1)
  - STEVENS-JOHNSON SYNDROME [None]
